FAERS Safety Report 14152048 (Version 2)
Quarter: 2017Q4

REPORT INFORMATION
  Report Type: Report from Study
  Country: CN (occurrence: CN)
  Receive Date: 20171102
  Receipt Date: 20171120
  Transmission Date: 20180321
  Serious: Yes (Death, Hospitalization)
  Sender: FDA-Public Use
  Company Number: PHHY2017CN161254

PATIENT
  Age: 58 Year
  Sex: Male

DRUGS (3)
  1. GLIVEC [Suspect]
     Active Substance: IMATINIB MESYLATE
     Dosage: 600 MG, QD
     Route: 048
     Dates: start: 201605
  2. GLIVEC [Suspect]
     Active Substance: IMATINIB MESYLATE
     Dosage: UNK
     Route: 048
  3. GLIVEC [Suspect]
     Active Substance: IMATINIB MESYLATE
     Indication: GASTROINTESTINAL STROMAL TUMOUR
     Dosage: 400 MG, QD
     Route: 048
     Dates: start: 201203

REACTIONS (10)
  - Gastrointestinal perforation [Unknown]
  - Metastasis [Unknown]
  - Gastrointestinal stromal tumour [Unknown]
  - Drug resistance [Unknown]
  - Peritonitis [Unknown]
  - Death [Fatal]
  - Metastases to liver [Unknown]
  - Flatulence [Unknown]
  - Malignant neoplasm progression [Unknown]
  - Metastases to peritoneum [Unknown]

NARRATIVE: CASE EVENT DATE: 201605
